FAERS Safety Report 13906051 (Version 1)
Quarter: 2017Q3

REPORT INFORMATION
  Report Type: Spontaneous
  Country: US (occurrence: None)
  Receive Date: 20170822
  Receipt Date: 20170822
  Transmission Date: 20171127
  Serious: Yes (Hospitalization)
  Sender: FDA-Public Use
  Company Number: None

PATIENT
  Age: 87 Year
  Sex: Male

DRUGS (1)
  1. NITROFURANTOIN. [Suspect]
     Active Substance: NITROFURANTOIN
     Indication: INFECTION
     Route: 048
     Dates: start: 20170720, end: 20170730

REACTIONS (5)
  - Thrombocytopenia [None]
  - Rash erythematous [None]
  - Papule [None]
  - Pyrexia [None]
  - Rash morbilliform [None]

NARRATIVE: CASE EVENT DATE: 20170726
